FAERS Safety Report 9639305 (Version 2)
Quarter: 2013Q4

REPORT INFORMATION
  Report Type: Spontaneous
  Country: FR (occurrence: None)
  Receive Date: 20131009
  Receipt Date: 20131119
  Transmission Date: 20140711
  Serious: Yes (Life-Threatening)
  Sender: FDA-Public Use
  Company Number: 2013038231

PATIENT
  Age: 20 Year
  Sex: Male

DRUGS (10)
  1. PRIVIGEN [Suspect]
     Indication: HYPOGAMMAGLOBULINAEMIA
     Route: 042
     Dates: start: 20130820
  2. CLAIRYG [Suspect]
  3. CORTICOSTEROIDS(CORTICOSTEROIDS) [Concomitant]
  4. CELLCEPT(MYCOPHENOLATE MOFETIL) [Concomitant]
  5. NEORAL(CICLOSPORIN) [Concomitant]
  6. ATG(ANTITHYMOCYE IMMUNOGLOBULIN) [Concomitant]
  7. IMMUNOGLOBULIN(IMMUNOGLOBULIN) [Concomitant]
  8. PLASMA(PLASMA) [Concomitant]
  9. RITUXIMAB(RITUXIMAB) [Concomitant]
  10. PROGRAF(TACROLIMUS) [Concomitant]

REACTIONS (3)
  - Anaphylactic shock [None]
  - Malaise [None]
  - Rash [None]
